FAERS Safety Report 22353058 (Version 1)
Quarter: 2023Q2

REPORT INFORMATION
  Report Type: Spontaneous
  Country: GB (occurrence: GB)
  Receive Date: 20230523
  Receipt Date: 20230523
  Transmission Date: 20230722
  Serious: Yes (Life-Threatening, Other)
  Sender: FDA-Public Use
  Company Number: None

PATIENT
  Age: 77 Year
  Sex: Female
  Weight: 83 kg

DRUGS (22)
  1. OZEMPIC [Suspect]
     Active Substance: SEMAGLUTIDE
     Indication: Product used for unknown indication
     Dosage: 1 TAB QW (1MG/0.74ML. USE ONCE WEEKLY AS DIRECTED)
     Route: 058
     Dates: start: 20201209
  2. ASPIRIN [Concomitant]
     Active Substance: ASPIRIN
     Indication: Product used for unknown indication
     Dosage: 1 TAB QD (STATIN CONTINUATION: TAKE ONE ON A NIGHT.)
     Dates: start: 20220706
  3. ATORVASTATIN [Concomitant]
     Active Substance: ATORVASTATIN
     Indication: Product used for unknown indication
     Dosage: 1 TAB QD (STATIN CONTINUATION: TAKE ONE ON A NIGHT.)
     Dates: start: 20220119
  4. BISOPROLOL [Concomitant]
     Active Substance: BISOPROLOL
     Indication: Product used for unknown indication
     Dosage: 1 TAB BID
     Dates: start: 20220621
  5. BUPRENORPHINE [Concomitant]
     Active Substance: BUPRENORPHINE
     Indication: Product used for unknown indication
     Dosage: 1 TAB QW APPLY ONE
     Dates: start: 20220707
  6. CLOPIDOGREL [Concomitant]
     Active Substance: CLOPIDOGREL BISULFATE
     Indication: Product used for unknown indication
     Dosage: 1 TAB, QD(REVIEW IN JUNE 2022 (12 MONTHS DUAL ANTIPLATELET THERAPY(DAPT))
     Dates: start: 20220621
  7. COCODAMOL [Concomitant]
     Active Substance: ACETAMINOPHEN\CODEINE PHOSPHATE
     Indication: Pain
     Dosage: 2 TAB 4 TIMES/DAY
     Dates: start: 20220706
  8. DOCUSATE SODIUM [Concomitant]
     Active Substance: DOCUSATE SODIUM
     Indication: Product used for unknown indication
     Dosage: 1 TAB TID
     Dates: start: 20220706
  9. FUROSEMIDE [Concomitant]
     Active Substance: FUROSEMIDE
     Indication: Product used for unknown indication
     Dosage: 1 TAB QD
     Dates: start: 20220621
  10. NITROGLYCERIN [Concomitant]
     Active Substance: NITROGLYCERIN
     Indication: Product used for unknown indication
     Dosage: USE AS DIRECTED WHEN REQUIRED
     Dates: start: 20190507
  11. LANSOPRAZOLE [Concomitant]
     Active Substance: LANSOPRAZOLE
     Indication: Product used for unknown indication
     Dosage: 1 TAB, BID
     Dates: start: 20211208
  12. LEVOTHYROXINE [Concomitant]
     Active Substance: LEVOTHYROXINE
     Indication: Product used for unknown indication
     Dosage: 1 TAB QD MORNING BEFORE BREAKFAST
     Dates: start: 20220623
  13. LOPERAMIDE [Concomitant]
     Active Substance: LOPERAMIDE
     Indication: Diarrhoea
     Dosage: 1 TAB UP TO QDS
  14. METFORMIN [Concomitant]
     Active Substance: METFORMIN HYDROCHLORIDE
     Indication: Product used for unknown indication
     Dosage: 1 TAB BID WITH BREAKFAST AND EVENING...
     Dates: start: 20220519
  15. ISOSORBIDE MONONITRATE [Concomitant]
     Active Substance: ISOSORBIDE MONONITRATE
     Indication: Product used for unknown indication
     Dosage: 1 TAB QD MORNING
     Dates: start: 20211005
  16. NICORANDIL [Concomitant]
     Active Substance: NICORANDIL
     Indication: Product used for unknown indication
     Dosage: 1 TAB, BID
     Dates: start: 20220222
  17. RAMIPRIL [Concomitant]
     Active Substance: RAMIPRIL
     Indication: Product used for unknown indication
     Dosage: 1 TAB, QD
     Dates: start: 20220621
  18. RANOLAZINE [Concomitant]
     Active Substance: RANOLAZINE
     Indication: Product used for unknown indication
     Dosage: 1 TAB, BID
     Dates: start: 20211223
  19. ALBUTEROL [Concomitant]
     Active Substance: ALBUTEROL
     Indication: Product used for unknown indication
     Dosage: ONE OR TWO PUFFS TO BE INHALED UP TO FOUR TIMES...
     Dates: start: 20190507
  20. CHOLECALCIFEROL [Concomitant]
     Active Substance: CHOLECALCIFEROL
     Indication: Product used for unknown indication
     Dosage: 1 TAB, QD
     Dates: start: 20220422
  21. TRESIBA [Concomitant]
     Active Substance: INSULIN DEGLUDEC
     Indication: Product used for unknown indication
     Dosage: 1 TAB QD USE ONCE DAILY AS DIRECTED
     Dates: start: 20220706
  22. ZEROCREAM [Concomitant]
     Indication: Product used for unknown indication
     Dosage: 1 TAB BID APPLY TO AFFECTED AREAS AND DRY SKIN
     Route: 061
     Dates: start: 20190704

REACTIONS (1)
  - Papillary thyroid cancer [Not Recovered/Not Resolved]
